FAERS Safety Report 5471644-3 (Version None)
Quarter: 2007Q3

REPORT INFORMATION
  Report Type: 
  Country: None (occurrence: None)
  Receive Date: 20070928
  Receipt Date: 20070227
  Transmission Date: 20080115
  Serious: No
  Sender: FDA-Public Use
  Company Number: US-BRISTOL-MYERS SQUIBB COMPANY-13694179

PATIENT
  Age: 43 Year
  Sex: Male
  Weight: 138 kg

DRUGS (5)
  1. DEFINITY [Suspect]
     Indication: ECHOCARDIOGRAM
     Dosage: DILUTED BOLUS OF DEFINITY
  2. ALBUTEROL [Concomitant]
  3. LASIX [Concomitant]
  4. PERCOCET [Concomitant]
  5. FLUDROCORTISONE ACETATE [Concomitant]

REACTIONS (2)
  - ARTHRALGIA [None]
  - BACK PAIN [None]
